FAERS Safety Report 15796116 (Version 5)
Quarter: 2019Q3

REPORT INFORMATION
  Report Type: Report from Study
  Country: None (occurrence: IL)
  Receive Date: 20190108
  Receipt Date: 20190806
  Transmission Date: 20191004
  Serious: Yes (Other)
  Sender: FDA-Public Use
  Company Number: IL-ABBVIE-18S-082-2443178-00

PATIENT
  Sex: Male

DRUGS (2)
  1. DUODOPA [Suspect]
     Active Substance: CARBIDOPA\LEVODOPA
     Indication: PARKINSON^S DISEASE
     Dosage: CMD 10ML, CCD 3ML/HOUR, CED 1.5ML
     Route: 050
     Dates: start: 20180423
  2. CARTIA [Concomitant]
     Indication: PRODUCT USED FOR UNKNOWN INDICATION

REACTIONS (10)
  - Haematochezia [Unknown]
  - Intervertebral disc protrusion [Unknown]
  - Pain [Recovering/Resolving]
  - Medical device site swelling [Recovering/Resolving]
  - Gait disturbance [Unknown]
  - Stoma site erythema [Recovering/Resolving]
  - Stoma site haemorrhage [Unknown]
  - Skin disorder [Unknown]
  - Stoma site hypergranulation [Not Recovered/Not Resolved]
  - Stoma site pain [Recovering/Resolving]

NARRATIVE: CASE EVENT DATE: 2018
